FAERS Safety Report 5104490-0 (Version None)
Quarter: 2006Q3

REPORT INFORMATION
  Report Type: 
  Country: None (occurrence: None)
  Receive Date: 20060908
  Receipt Date: 20060908
  Transmission Date: 20061208
  Serious: Yes (Other)
  Sender: FDA-Public Use
  Company Number: None

PATIENT
  Age: 76 Year
  Sex: Male
  Weight: 65.7716 kg

DRUGS (1)
  1. FLOMAX [Suspect]
     Indication: BENIGN PROSTATIC HYPERPLASIA
     Dosage: ON CAPSULE ONCE DAILY PO
     Route: 048
     Dates: start: 20041015, end: 20060620

REACTIONS (4)
  - EXERCISE TOLERANCE DECREASED [None]
  - HEADACHE [None]
  - MITRAL VALVE PROLAPSE [None]
  - PALPITATIONS [None]
